FAERS Safety Report 5672032-7 (Version None)
Quarter: 2008Q1

REPORT INFORMATION
  Report Type: 
  Country: None (occurrence: None)
  Receive Date: 20080317
  Receipt Date: 20080317
  Transmission Date: 20080703
  Serious: No
  Sender: FDA-Public Use
  Company Number: None

PATIENT
  Age: 28 Year
  Sex: Male
  Weight: 82.6 kg

DRUGS (1)
  1. VARENICLINE [Suspect]
     Indication: NICOTINE DEPENDENCE
     Dosage: 0.5MG EVERY DAY PO
     Route: 048
     Dates: start: 20080310, end: 20080313

REACTIONS (2)
  - FATIGUE [None]
  - ROAD TRAFFIC ACCIDENT [None]
